FAERS Safety Report 25940129 (Version 1)
Quarter: 2025Q4

REPORT INFORMATION
  Report Type: Spontaneous
  Country: GB (occurrence: GB)
  Receive Date: 20251020
  Receipt Date: 20251020
  Transmission Date: 20260118
  Serious: Yes (Hospitalization, Other)
  Sender: MYLAN
  Company Number: GB-MYLANLABS-2025M1084545

PATIENT
  Sex: Male
  Weight: 102 kg

DRUGS (40)
  1. CLOZARIL [Suspect]
     Active Substance: CLOZAPINE
     Indication: Schizophrenia
     Dosage: 250 MILLIGRAM, PM (ONCE DAILY AT NIGHT)
     Dates: start: 20250908, end: 20250925
  2. CLOZARIL [Suspect]
     Active Substance: CLOZAPINE
     Indication: Delusional disorder, unspecified type
     Dosage: 250 MILLIGRAM, PM (ONCE DAILY AT NIGHT)
     Route: 048
     Dates: start: 20250908, end: 20250925
  3. CLOZARIL [Suspect]
     Active Substance: CLOZAPINE
     Dosage: 250 MILLIGRAM, PM (ONCE DAILY AT NIGHT)
     Route: 048
     Dates: start: 20250908, end: 20250925
  4. CLOZARIL [Suspect]
     Active Substance: CLOZAPINE
     Dosage: 250 MILLIGRAM, PM (ONCE DAILY AT NIGHT)
     Dates: start: 20250908, end: 20250925
  5. DIAZEPAM [Concomitant]
     Active Substance: DIAZEPAM
     Indication: Anxiety
     Dosage: 15 MILLIGRAM, QD (OD)
  6. DIAZEPAM [Concomitant]
     Active Substance: DIAZEPAM
     Dosage: 15 MILLIGRAM, QD (OD)
  7. DIAZEPAM [Concomitant]
     Active Substance: DIAZEPAM
     Dosage: 15 MILLIGRAM, QD (OD)
     Route: 048
  8. DIAZEPAM [Concomitant]
     Active Substance: DIAZEPAM
     Dosage: 15 MILLIGRAM, QD (OD)
     Route: 048
  9. DIAZEPAM [Concomitant]
     Active Substance: DIAZEPAM
     Dosage: 10 MILLIGRAM
  10. DIAZEPAM [Concomitant]
     Active Substance: DIAZEPAM
     Dosage: 10 MILLIGRAM
  11. DIAZEPAM [Concomitant]
     Active Substance: DIAZEPAM
     Dosage: 10 MILLIGRAM
     Route: 048
  12. DIAZEPAM [Concomitant]
     Active Substance: DIAZEPAM
     Dosage: 10 MILLIGRAM
     Route: 048
  13. MOMETASONE FUROATE [Concomitant]
     Active Substance: MOMETASONE FUROATE
     Indication: Sinusitis
     Dosage: 50 MICROGRAM, QD (OD)
  14. MOMETASONE FUROATE [Concomitant]
     Active Substance: MOMETASONE FUROATE
     Dosage: 50 MICROGRAM, QD (OD)
     Route: 045
  15. MOMETASONE FUROATE [Concomitant]
     Active Substance: MOMETASONE FUROATE
     Dosage: 50 MICROGRAM, QD (OD)
     Route: 045
  16. MOMETASONE FUROATE [Concomitant]
     Active Substance: MOMETASONE FUROATE
     Dosage: 50 MICROGRAM, QD (OD)
  17. FLUOXETINE [Concomitant]
     Active Substance: FLUOXETINE HYDROCHLORIDE
     Indication: Depression
     Dosage: 40 MILLIGRAM, QD (OD)
  18. FLUOXETINE [Concomitant]
     Active Substance: FLUOXETINE HYDROCHLORIDE
     Indication: Obsessive-compulsive disorder
     Dosage: 40 MILLIGRAM, QD (OD)
     Route: 048
  19. FLUOXETINE [Concomitant]
     Active Substance: FLUOXETINE HYDROCHLORIDE
     Dosage: 40 MILLIGRAM, QD (OD)
     Route: 048
  20. FLUOXETINE [Concomitant]
     Active Substance: FLUOXETINE HYDROCHLORIDE
     Dosage: 40 MILLIGRAM, QD (OD)
  21. ROSUVASTATIN [Concomitant]
     Active Substance: ROSUVASTATIN
     Indication: Blood cholesterol
     Dosage: 10 MILLIGRAM, QD (OD)
  22. ROSUVASTATIN [Concomitant]
     Active Substance: ROSUVASTATIN
     Dosage: 10 MILLIGRAM, QD (OD)
     Route: 048
  23. ROSUVASTATIN [Concomitant]
     Active Substance: ROSUVASTATIN
     Dosage: 10 MILLIGRAM, QD (OD)
     Route: 048
  24. ROSUVASTATIN [Concomitant]
     Active Substance: ROSUVASTATIN
     Dosage: 10 MILLIGRAM, QD (OD)
  25. NITROGLYCERIN [Concomitant]
     Active Substance: NITROGLYCERIN
     Indication: Angina pectoris
     Dosage: UNK (1-2 SPRAYS), PRN
  26. NITROGLYCERIN [Concomitant]
     Active Substance: NITROGLYCERIN
     Dosage: UNK (1-2 SPRAYS), PRN
     Route: 060
  27. NITROGLYCERIN [Concomitant]
     Active Substance: NITROGLYCERIN
     Dosage: UNK (1-2 SPRAYS), PRN
     Route: 060
  28. NITROGLYCERIN [Concomitant]
     Active Substance: NITROGLYCERIN
     Dosage: UNK (1-2 SPRAYS), PRN
  29. RANITIDINE HYDROCHLORIDE [Concomitant]
     Active Substance: RANITIDINE HYDROCHLORIDE
     Indication: Dyspepsia
     Dosage: UNK (10 TO 20ML), PRN (MAX 80ML IN 24HRS)
  30. RANITIDINE HYDROCHLORIDE [Concomitant]
     Active Substance: RANITIDINE HYDROCHLORIDE
     Dosage: UNK (10 TO 20ML), PRN (MAX 80ML IN 24HRS)
     Route: 048
  31. RANITIDINE HYDROCHLORIDE [Concomitant]
     Active Substance: RANITIDINE HYDROCHLORIDE
     Dosage: UNK (10 TO 20ML), PRN (MAX 80ML IN 24HRS)
     Route: 048
  32. RANITIDINE HYDROCHLORIDE [Concomitant]
     Active Substance: RANITIDINE HYDROCHLORIDE
     Dosage: UNK (10 TO 20ML), PRN (MAX 80ML IN 24HRS)
  33. OMEPRAZOLE [Concomitant]
     Active Substance: OMEPRAZOLE
     Indication: Dyspepsia
     Dosage: 10 MILLIGRAM, AM (OD AT BREAKFAST)
     Dates: end: 20251001
  34. OMEPRAZOLE [Concomitant]
     Active Substance: OMEPRAZOLE
     Dosage: 10 MILLIGRAM, AM (OD AT BREAKFAST)
     Route: 048
     Dates: end: 20251001
  35. OMEPRAZOLE [Concomitant]
     Active Substance: OMEPRAZOLE
     Dosage: 10 MILLIGRAM, AM (OD AT BREAKFAST)
     Route: 048
     Dates: end: 20251001
  36. OMEPRAZOLE [Concomitant]
     Active Substance: OMEPRAZOLE
     Dosage: 10 MILLIGRAM, AM (OD AT BREAKFAST)
     Dates: end: 20251001
  37. FAMOTIDINE [Concomitant]
     Active Substance: FAMOTIDINE
     Indication: Dyspepsia
     Dosage: 40 MILLIGRAM, BID (TWICE DAILY)
     Dates: end: 20251007
  38. FAMOTIDINE [Concomitant]
     Active Substance: FAMOTIDINE
     Dosage: 40 MILLIGRAM, BID (TWICE DAILY)
     Route: 048
     Dates: end: 20251007
  39. FAMOTIDINE [Concomitant]
     Active Substance: FAMOTIDINE
     Dosage: 40 MILLIGRAM, BID (TWICE DAILY)
     Route: 048
     Dates: end: 20251007
  40. FAMOTIDINE [Concomitant]
     Active Substance: FAMOTIDINE
     Dosage: 40 MILLIGRAM, BID (TWICE DAILY)
     Dates: end: 20251007

REACTIONS (2)
  - Myocarditis [Unknown]
  - Off label use [Unknown]
